FAERS Safety Report 23069262 (Version 4)
Quarter: 2023Q4

REPORT INFORMATION
  Report Type: Spontaneous
  Country: CA (occurrence: CA)
  Receive Date: 20231016
  Receipt Date: 20231218
  Transmission Date: 20240110
  Serious: Yes (Other)
  Sender: FDA-Public Use
  Company Number: CA-PFIZER INC-2016238406

PATIENT
  Age: 61 Year
  Sex: Male
  Weight: 63.1 kg

DRUGS (6)
  1. IBRANCE [Suspect]
     Active Substance: PALBOCICLIB
     Indication: Breast cancer metastatic
     Dosage: 125 MG, CYCLIC (ONCE DAILY FOR 3 WEEKS OUT OF 4 WEEKS)
     Route: 048
     Dates: start: 20160606
  2. IBRANCE [Suspect]
     Active Substance: PALBOCICLIB
     Indication: Breast cancer male
     Dosage: 100 MG
     Route: 048
     Dates: end: 201712
  3. IBRANCE [Suspect]
     Active Substance: PALBOCICLIB
     Dosage: 100 MG, CYCLIC (21 DAYS THEN 7 DAYS OFF )
     Route: 048
  4. LETROZOLE [Concomitant]
     Active Substance: LETROZOLE
     Dosage: 2.5 MG, DAILY, TAKE 1 TABLET ONCE DAILY AS DIRECTED
  5. RABEPRAZOLE [Concomitant]
     Active Substance: RABEPRAZOLE
     Dosage: 20 MG, DAILY, TAKE 1 TABLET DAILY
  6. ROSUVASTATIN [Concomitant]
     Active Substance: ROSUVASTATIN
     Dosage: 10 MG, DAILY, 10MG TAKE 1 TABLET ONCE DAILY,

REACTIONS (3)
  - Diabetes mellitus [Unknown]
  - Diarrhoea [Unknown]
  - Weight decreased [Unknown]
